FAERS Safety Report 9439893 (Version 1)
Quarter: 2013Q3

REPORT INFORMATION
  Report Type: Report from Study
  Country: US (occurrence: US)
  Receive Date: 20130805
  Receipt Date: 20130805
  Transmission Date: 20140515
  Serious: Yes (Hospitalization)
  Sender: FDA-Public Use
  Company Number: US-JNJFOC-20130717378

PATIENT
  Age: 33 Year
  Sex: Male
  Weight: 99.79 kg

DRUGS (4)
  1. REMICADE [Suspect]
     Indication: PSORIASIS
     Dosage: EVERY 6 TO 8 WEEKS
     Route: 042
     Dates: start: 2012
  2. REMICADE [Suspect]
     Indication: PSORIATIC ARTHROPATHY
     Dosage: EVERY 6 TO 8 WEEKS
     Route: 042
     Dates: start: 2012
  3. PERCOCET [Concomitant]
     Indication: PAIN
     Dosage: 10/325MG PER TABLET
     Route: 048
     Dates: start: 2012
  4. XANAX [Concomitant]
     Indication: ANXIETY
     Route: 048
     Dates: start: 2013

REACTIONS (4)
  - Arthralgia [Not Recovered/Not Resolved]
  - Diarrhoea [Recovered/Resolved]
  - Dry skin [Not Recovered/Not Resolved]
  - Skin disorder [Not Recovered/Not Resolved]
